FAERS Safety Report 7376284-7 (Version None)
Quarter: 2011Q1

REPORT INFORMATION
  Report Type: 
  Country: None (occurrence: None)
  Receive Date: 20110325
  Receipt Date: 20110323
  Transmission Date: 20110831
  Serious: Yes (Other)
  Sender: FDA-Public Use
  Company Number: US-CEPHALON-2011001370

PATIENT
  Sex: Male

DRUGS (2)
  1. TREANDA [Suspect]
     Route: 042
  2. RITUXIMAB [Concomitant]

REACTIONS (1)
  - ASCITES [None]
